FAERS Safety Report 4271562-2 (Version None)
Quarter: 2004Q1

REPORT INFORMATION
  Report Type: 
  Country: None (occurrence: None)
  Receive Date: 20040113
  Receipt Date: 20031231
  Transmission Date: 20041129
  Serious: Yes (Other)
  Sender: FDA-Public Use
  Company Number: HQWYE172207JAN04

PATIENT
  Sex: Female

DRUGS (2)
  1. EFFEXOR XR [Suspect]
     Dosage: 150 MG,ORAL
     Route: 048
     Dates: start: 20020101, end: 20020101
  2. AMERGE [Suspect]
     Dosage: 0.5 TABLET 2X PER 1 DAY, ORAL
     Route: 048
     Dates: start: 20020101, end: 20020101

REACTIONS (7)
  - ARTHRALGIA [None]
  - DRUG INTERACTION [None]
  - DRUG WITHDRAWAL SYNDROME [None]
  - INFECTIOUS MONONUCLEOSIS [None]
  - JOINT STIFFNESS [None]
  - NEUTROPENIA [None]
  - SEROTONIN SYNDROME [None]
